FAERS Safety Report 13379543 (Version 1)
Quarter: 2017Q1

REPORT INFORMATION
  Report Type: Spontaneous
  Country: GB (occurrence: GB)
  Receive Date: 20170328
  Receipt Date: 20170328
  Transmission Date: 20170429
  Serious: Yes (Other)
  Sender: FDA-Public Use
  Company Number: GB-MYLANLABS-2017M1018848

PATIENT

DRUGS (3)
  1. CALPOL [Concomitant]
     Active Substance: ACETAMINOPHEN
     Dosage: UNK
  2. AMOXYCILLIN [Concomitant]
     Active Substance: AMOXICILLIN
     Dosage: UNK
  3. CLARITHROMYCIN. [Suspect]
     Active Substance: CLARITHROMYCIN
     Indication: LOWER RESPIRATORY TRACT INFECTION
     Dosage: 5 ML, UNK
     Route: 048
     Dates: start: 20170302, end: 20170306

REACTIONS (6)
  - Cough [Not Recovered/Not Resolved]
  - Product taste abnormal [Unknown]
  - Vomiting [Not Recovered/Not Resolved]
  - Nausea [Not Recovered/Not Resolved]
  - Retching [Not Recovered/Not Resolved]
  - Decreased appetite [Not Recovered/Not Resolved]

NARRATIVE: CASE EVENT DATE: 20170302
